FAERS Safety Report 8523685-7 (Version None)
Quarter: 2012Q3

REPORT INFORMATION
  Report Type: 
  Country: None (occurrence: None)
  Receive Date: 20120720
  Receipt Date: 20120713
  Transmission Date: 20120928
  Serious: Yes (Other)
  Sender: FDA-Public Use
  Company Number: CN-ABBOTT-12P-035-0940369-00

PATIENT
  Age: 16 Year
  Sex: Male

DRUGS (3)
  1. VITAMIN D [Concomitant]
     Indication: PRODUCT USED FOR UNKNOWN INDICATION
     Dates: start: 20120515
  2. DEPAKENE [Suspect]
     Dosage: 1.5 GASTRO-RESISTANT TABLET DAILY
     Route: 048
     Dates: start: 20120522, end: 20120606
  3. DEPAKENE [Suspect]
     Indication: EPILEPSY
     Dosage: 1 GASTRO-RESISTANT TABLET DAILY
     Route: 048
     Dates: start: 20120515, end: 20120521

REACTIONS (5)
  - DRUG INEFFECTIVE [None]
  - EPILEPSY [None]
  - DIARRHOEA [None]
  - GASTRITIS [None]
  - ABDOMINAL PAIN UPPER [None]
